FAERS Safety Report 5140833-X (Version None)
Quarter: 2006Q4

REPORT INFORMATION
  Report Type: 
  Country: None (occurrence: None)
  Receive Date: 20061031
  Receipt Date: 20060922
  Transmission Date: 20070319
  Serious: Yes (Hospitalization)
  Sender: FDA-Public Use
  Company Number: JP-MERCK-0610USA06464

PATIENT
  Age: 49 Year
  Sex: Female

DRUGS (5)
  1. FOSAMAX [Suspect]
     Indication: OSTEOPOROSIS PROPHYLAXIS
     Route: 048
     Dates: start: 20060505, end: 20060610
  2. PREDONINE [Suspect]
     Indication: INFLAMMATION
     Route: 065
     Dates: start: 20060505, end: 20060609
  3. PREDONINE [Suspect]
     Route: 065
     Dates: start: 20060610, end: 20060625
  4. ECABET SODIUM [Suspect]
     Indication: PROPHYLAXIS AGAINST GASTROINTESTINAL ULCER
     Route: 048
     Dates: start: 20060505, end: 20060610
  5. PARIET [Suspect]
     Indication: PROPHYLAXIS AGAINST GASTROINTESTINAL ULCER
     Route: 048
     Dates: start: 20060505, end: 20060610

REACTIONS (1)
  - HEPATIC FUNCTION ABNORMAL [None]
